FAERS Safety Report 15180315 (Version 1)
Quarter: 2018Q3

REPORT INFORMATION
  Report Type: Report from Study
  Country: US (occurrence: US)
  Receive Date: 20180723
  Receipt Date: 20180723
  Transmission Date: 20181010
  Serious: Yes (Other)
  Sender: FDA-Public Use
  Company Number: US-ASTELLAS-2018US032582

PATIENT
  Age: 51 Year
  Sex: Female

DRUGS (2)
  1. TACROLIMUS. [Suspect]
     Active Substance: TACROLIMUS
     Indication: HEART TRANSPLANT
     Dosage: 0.5 MG, ONCE DAILY
     Route: 048
  2. TACROLIMUS. [Suspect]
     Active Substance: TACROLIMUS
     Indication: HEART TRANSPLANT
     Dosage: 5 MG, ONCE DAILY (3 MG EVERY MORNING AND 2 MG EVERY EVENING)
     Route: 048

REACTIONS (2)
  - Heart transplant [Unknown]
  - Renal transplant [Unknown]

NARRATIVE: CASE EVENT DATE: 20080407
